FAERS Safety Report 10370314 (Version 1)
Quarter: 2014Q1

REPORT INFORMATION
  Report Type: Spontaneous
  Country: US (occurrence: None)
  Receive Date: 20140306
  Receipt Date: 20140306
  Transmission Date: 20141002
  Serious: Yes (Other)
  Sender: FDA-Public Use
  Company Number: 163-21880-13070767

PATIENT
  Age: 82 Year
  Sex: Male

DRUGS (5)
  1. REVLIMID (LENALIDOMIDE) (10 MILLIGRAM, CAPSULES) [Suspect]
     Indication: PLASMA CELL MYELOMA
     Route: 048
     Dates: start: 20130612, end: 20130812
  2. CIPRO (CIPROFLOXACIN) (EYE DROPS) [Concomitant]
  3. ZOCOR (SIMVASTATIN) (UNKNOWN) [Concomitant]
  4. BABY ASPIRIN (ACETYLSALICYLIC ACID) (UNKNOWN) [Concomitant]
  5. BLOOD PRESSURE MEDICATION (ANTIHYPERTENSIVES) (UNKNOWN) [Concomitant]

REACTIONS (3)
  - Jaundice [None]
  - Hyperbilirubinaemia [None]
  - Somnolence [None]
